FAERS Safety Report 5162855-5 (Version None)
Quarter: 2006Q4

REPORT INFORMATION
  Report Type: 
  Country: None (occurrence: None)
  Receive Date: 20061201
  Receipt Date: 20020624
  Transmission Date: 20070319
  Serious: Yes (Hospitalization)
  Sender: FDA-Public Use
  Company Number: FR-GLAXOSMITHKLINE-B0272229A

PATIENT
  Sex: Female
  Weight: 3.9 kg

DRUGS (5)
  1. RETROVIR [Suspect]
     Indication: ANTIVIRAL PROPHYLAXIS
     Route: 048
     Dates: start: 19990910
  2. VIRAMUNE [Suspect]
     Indication: ANTIVIRAL PROPHYLAXIS
     Route: 048
     Dates: start: 19990911, end: 19990911
  3. RETROVIR [Suspect]
     Indication: HIV INFECTION
     Route: 048
     Dates: start: 19990801
  4. VIRAMUNE [Suspect]
     Route: 048
     Dates: start: 19990910, end: 19990910
  5. RETROVIR [Suspect]
     Route: 042
     Dates: start: 19990910, end: 19990910

REACTIONS (12)
  - BLOOD KETONE BODY INCREASED [None]
  - BLOOD KETONE BODY PRESENT [None]
  - BLOOD LACTIC ACID INCREASED [None]
  - CAESAREAN SECTION [None]
  - CONVULSION [None]
  - DRUG EXPOSURE DURING PREGNANCY [None]
  - HYPOTONIA [None]
  - LABORATORY TEST ABNORMAL [None]
  - NEONATAL DISORDER [None]
  - NEUTROPENIA [None]
  - RHINITIS [None]
  - THROMBOCYTHAEMIA [None]
